FAERS Safety Report 24169416 (Version 1)
Quarter: 2024Q3

REPORT INFORMATION
  Report Type: Spontaneous
  Country: CN (occurrence: None)
  Receive Date: 20240802
  Receipt Date: 20240802
  Transmission Date: 20241017
  Serious: Yes (Hospitalization, Other)
  Sender: ASTRAZENECA
  Company Number: 2024A172143

PATIENT
  Age: 35 Year
  Sex: Male
  Weight: 65 kg

DRUGS (1)
  1. DAPAGLIFLOZIN [Suspect]
     Active Substance: DAPAGLIFLOZIN
     Indication: Blood glucose increased
     Route: 048
     Dates: start: 20240715, end: 20240721

REACTIONS (3)
  - Ketosis [Recovering/Resolving]
  - Urine ketone body present [Recovering/Resolving]
  - Blood ketone body present [Recovering/Resolving]

NARRATIVE: CASE EVENT DATE: 20240721
